FAERS Safety Report 4839598-8 (Version None)
Quarter: 2005Q4

REPORT INFORMATION
  Report Type: 
  Country: None (occurrence: None)
  Receive Date: 20051125
  Receipt Date: 20051121
  Transmission Date: 20060501
  Serious: Yes (Hospitalization)
  Sender: FDA-Public Use
  Company Number: 2005-11-0228

PATIENT
  Age: 66 Year
  Sex: Female

DRUGS (2)
  1. PEGASYS [Suspect]
     Indication: HEPATITIS VIRAL
     Dosage: 180 MCG QWK SUBCUTANEOUS
     Route: 058
     Dates: start: 20040903, end: 20050112
  2. REBETOL [Suspect]
     Indication: HEPATITIS VIRAL
     Dosage: 500 MG BID ORAL
     Route: 048
     Dates: start: 20040903, end: 20050112

REACTIONS (4)
  - ANAEMIA [None]
  - LEUKOPENIA [None]
  - PERSONALITY DISORDER [None]
  - WEIGHT DECREASED [None]
